FAERS Safety Report 18262420 (Version 1)
Quarter: 2020Q3

REPORT INFORMATION
  Report Type: Spontaneous
  Country: US (occurrence: US)
  Receive Date: 20200501
  Receipt Date: 20200501
  Transmission Date: 20201103
  Serious: Yes (Death)
  Sender: FDA-Public Use
  Company Number: None

PATIENT
  Age: 8 Decade
  Sex: Female

DRUGS (5)
  1. THYMOSIN [Suspect]
     Active Substance: THYMOSIN
     Indication: COVID-19
  2. KELIZHI (LOPINAVIR\RITONAVIR) [Suspect]
     Active Substance: LOPINAVIR\RITONAVIR
     Indication: COVID-19
  3. METHYLPREDNISOLONE. [Suspect]
     Active Substance: METHYLPREDNISOLONE
     Indication: COVID-19
  4. INTERFERON ALFA?1B [Suspect]
     Active Substance: INTERFERON ALFA-1B
     Indication: COVID-19
  5. IMMUNOGLOBULINS, INTRAVENOUS [Suspect]
     Active Substance: HUMAN IMMUNOGLOBULIN G
     Indication: COVID-19

REACTIONS (10)
  - Gastrointestinal inflammation [None]
  - Alveolitis [None]
  - Alveolar lung disease [None]
  - Product use issue [None]
  - Cough [None]
  - Rhinorrhoea [None]
  - Fatigue [None]
  - Multi-organ disorder [None]
  - Disease progression [None]
  - Hypothermia [None]
